FAERS Safety Report 4850715-6 (Version None)
Quarter: 2005Q4

REPORT INFORMATION
  Report Type: 
  Country: None (occurrence: None)
  Receive Date: 20051208
  Receipt Date: 20051128
  Transmission Date: 20060501
  Serious: Yes (Death)
  Sender: FDA-Public Use
  Company Number: 2005S1000338

PATIENT
  Age: 0 Year
  Sex: Female

DRUGS (1)
  1. SORIATANE [Suspect]
     Indication: HARLEQUIN FOETUS
     Dosage: 25MG;TIW;PO
     Route: 048
     Dates: start: 20051002, end: 20051118

REACTIONS (1)
  - NOSOCOMIAL INFECTION [None]
